FAERS Safety Report 20322858 (Version 3)
Quarter: 2022Q1

REPORT INFORMATION
  Report Type: Spontaneous
  Country: UA (occurrence: None)
  Receive Date: 20220111
  Receipt Date: 20220118
  Transmission Date: 20220423
  Serious: Yes (Other)
  Sender: FDA-Public Use
  Company Number: 2022A008816

PATIENT
  Age: 62 Year
  Sex: Male
  Weight: 106 kg

DRUGS (7)
  1. SEROQUEL XR [Suspect]
     Active Substance: QUETIAPINE FUMARATE
     Indication: Prophylaxis
     Route: 048
     Dates: end: 20211231
  2. SEROQUEL XR [Suspect]
     Active Substance: QUETIAPINE FUMARATE
     Indication: Prophylaxis
     Route: 048
     Dates: start: 20220101
  3. SEROQUEL XR [Suspect]
     Active Substance: QUETIAPINE FUMARATE
     Indication: Prophylaxis
     Route: 048
     Dates: start: 20220106
  4. RAMIPRIL [Concomitant]
     Active Substance: RAMIPRIL
     Dosage: 5 MG, TABLETS IN THE MORNING AND 2.5 MG, TABLETS IN THE EVENING
     Route: 065
  5. BETAXOLOL HYDROCHLORIDE [Concomitant]
     Active Substance: BETAXOLOL HYDROCHLORIDE
     Route: 065
  6. GIDAZEPAM [Concomitant]
     Indication: Panic attack
     Dosage: 50.0MG AS REQUIRED
     Route: 065
  7. NORMODIPIN [Concomitant]
     Indication: Blood pressure increased
     Dosage: 5.0MG AS REQUIRED
     Route: 065

REACTIONS (7)
  - Panic attack [Recovered/Resolved]
  - Blood pressure increased [Recovered/Resolved]
  - Anxiety [Recovered/Resolved]
  - Discomfort [Recovered/Resolved]
  - Somnolence [Not Recovered/Not Resolved]
  - Drug ineffective [Recovered/Resolved]
  - Off label use [Unknown]

NARRATIVE: CASE EVENT DATE: 20211227
